FAERS Safety Report 8315428-7 (Version None)
Quarter: 2012Q2

REPORT INFORMATION
  Report Type: 
  Country: None (occurrence: None)
  Receive Date: 20120426
  Receipt Date: 20120417
  Transmission Date: 20120825
  Serious: Yes (Hospitalization)
  Sender: FDA-Public Use
  Company Number: US-ABBOTT-12P-163-0926520-00

PATIENT
  Sex: Female
  Weight: 68.1 kg

DRUGS (7)
  1. CAFFEINE CITRATE [Concomitant]
     Indication: PRODUCT USED FOR UNKNOWN INDICATION
     Dates: start: 20070624, end: 20080304
  2. ALCOHOL [Concomitant]
     Indication: PRODUCT USED FOR UNKNOWN INDICATION
     Dates: start: 20070701, end: 20070731
  3. HUMIRA [Suspect]
     Indication: SERONEGATIVE ARTHRITIS
     Dates: start: 20070624, end: 20070801
  4. FOLIC ACID [Concomitant]
     Indication: PRODUCT USED FOR UNKNOWN INDICATION
     Route: 048
     Dates: start: 20070624, end: 20070801
  5. CELEBREX [Concomitant]
     Indication: SERONEGATIVE ARTHRITIS
     Route: 048
     Dates: start: 20070624, end: 20070801
  6. MULTI-VITAMINS [Concomitant]
     Indication: PRODUCT USED FOR UNKNOWN INDICATION
     Route: 048
     Dates: start: 20070815, end: 20080304
  7. PLAQUENIL [Concomitant]
     Indication: SERONEGATIVE ARTHRITIS
     Route: 048
     Dates: start: 20070624, end: 20070801

REACTIONS (7)
  - HYPERTENSION [None]
  - RASH [None]
  - DYSPEPSIA [None]
  - RESPIRATORY TRACT INFECTION [None]
  - INFLUENZA [None]
  - GLUCOSE TOLERANCE TEST ABNORMAL [None]
  - PREMATURE LABOUR [None]
